FAERS Safety Report 5827504-9 (Version None)
Quarter: 2008Q3

REPORT INFORMATION
  Report Type: 
  Country: None (occurrence: None)
  Receive Date: 20080725
  Receipt Date: 20080714
  Transmission Date: 20090109
  Serious: Yes (Other)
  Sender: FDA-Public Use
  Company Number: 2008B013149

PATIENT
  Sex: Female

DRUGS (1)
  1. AVONEX [Suspect]
     Indication: MULTIPLE SCLEROSIS
     Dosage: 30 UG;BIW;IM
     Route: 030
     Dates: start: 20070101, end: 20070801

REACTIONS (6)
  - DRUG EXPOSURE DURING PREGNANCY [None]
  - MULTIPLE SCLEROSIS RELAPSE [None]
  - PRE-ECLAMPSIA [None]
  - PREMATURE LABOUR [None]
  - SPEECH DISORDER [None]
  - VISUAL IMPAIRMENT [None]
